FAERS Safety Report 5460419-7 (Version None)
Quarter: 2007Q3

REPORT INFORMATION
  Report Type: 
  Country: None (occurrence: None)
  Receive Date: 20070919
  Receipt Date: 20070703
  Transmission Date: 20080115
  Serious: No
  Sender: FDA-Public Use
  Company Number: US-ASTRAZENECA-2007UW15648

PATIENT
  Sex: Female

DRUGS (2)
  1. SEROQUEL [Suspect]
     Indication: INSOMNIA
     Route: 048
  2. PERCOCET [Concomitant]

REACTIONS (6)
  - DRUG INEFFECTIVE FOR UNAPPROVED INDICATION [None]
  - IMMUNE SYSTEM DISORDER [None]
  - INFECTION [None]
  - INSOMNIA [None]
  - SKIN EXFOLIATION [None]
  - URTICARIA [None]
